FAERS Safety Report 8848523 (Version 1)
Quarter: 2012Q4

REPORT INFORMATION
  Report Type: 
  Country: US (occurrence: US)
  Receive Date: 20121018
  Receipt Date: 20121018
  Transmission Date: 20130627
  Serious: Yes (Hospitalization, Other)
  Sender: FDA-Public Use
  Company Number: US-PFIZER INC-2009209463

PATIENT
  Age: 59 Year
  Sex: Female

DRUGS (9)
  1. MEDROXYPROGESTERONE ACETATE [Suspect]
     Indication: HORMONE REPLACEMENT THERAPY
     Dosage: 2.5 mg, UNK
     Dates: start: 1990, end: 200412
  2. PREMARIN [Suspect]
     Indication: HORMONE REPLACEMENT THERAPY
     Dosage: UNK
     Dates: start: 1990, end: 199809
  3. PREMARIN [Suspect]
     Dosage: 0.9 mg, UNK
     Dates: start: 199809, end: 200010
  4. PREMARIN [Suspect]
     Dosage: 0.625 mg, UNK
     Dates: start: 200010, end: 200112
  5. PREMARIN [Suspect]
     Dosage: 0.9 mg, UNK
     Dates: start: 200112, end: 200412
  6. PREMPRO [Suspect]
     Indication: HORMONE REPLACEMENT THERAPY
  7. ESTRATEST [Suspect]
     Indication: HORMONE REPLACEMENT THERAPY
  8. LIPITOR [Concomitant]
     Indication: HYPERTENSION
     Dosage: UNK
     Dates: start: 2000
  9. SULINDAC [Concomitant]
     Indication: PAIN
     Dosage: UNK
     Dates: start: 2003

REACTIONS (2)
  - Breast cancer [Unknown]
  - Ovarian cancer [Unknown]
